FAERS Safety Report 11516528 (Version 1)
Quarter: 2015Q3

REPORT INFORMATION
  Report Type: Spontaneous
  Country: US (occurrence: US)
  Receive Date: 20150917
  Receipt Date: 20150917
  Transmission Date: 20151125
  Serious: No
  Sender: FDA-Public Use
  Company Number: US-GLENMARK PHARMACEUTICALS INC, USA.-2014GMK011487

PATIENT
  Age: 26 Year
  Sex: Female
  Weight: 88.44 kg

DRUGS (2)
  1. NORETHINDRONE ACETATE. [Suspect]
     Active Substance: NORETHINDRONE ACETATE
     Dosage: UNK, OD
     Dates: start: 20140611
  2. LUPRON [Suspect]
     Active Substance: LEUPROLIDE ACETATE
     Dosage: 3.75 MG, ONCE EVERY MONTH
     Dates: start: 20140611

REACTIONS (4)
  - Gastritis [Unknown]
  - Mood swings [Not Recovered/Not Resolved]
  - Abdominal pain [Recovered/Resolved]
  - Hot flush [Not Recovered/Not Resolved]

NARRATIVE: CASE EVENT DATE: 20140804
